FAERS Safety Report 6979626-7 (Version None)
Quarter: 2010Q3

REPORT INFORMATION
  Report Type: 
  Country: None (occurrence: None)
  Receive Date: 20100910
  Receipt Date: 20100910
  Transmission Date: 20110219
  Serious: Yes (Hospitalization)
  Sender: FDA-Public Use
  Company Number: None

PATIENT
  Age: 60 Year
  Sex: Female

DRUGS (2)
  1. PEGINTERFERON ALFA-2A [Suspect]
     Indication: HEPATITIS C
     Dosage: 180MCG WEEKLY SQ
     Route: 058
  2. RIBAVIRIN [Suspect]
     Dosage: 2 CAPS BID PO
     Route: 048

REACTIONS (1)
  - THROMBOCYTOPENIA [None]
